FAERS Safety Report 8473491-7 (Version None)
Quarter: 2012Q2

REPORT INFORMATION
  Report Type: 
  Country: None (occurrence: None)
  Receive Date: 20120625
  Receipt Date: 20120625
  Transmission Date: 20120825
  Serious: Yes (Other)
  Sender: FDA-Public Use
  Company Number: None

PATIENT
  Age: 24 Year
  Sex: Female
  Weight: 56.6996 kg

DRUGS (1)
  1. IMPLANON [Suspect]

REACTIONS (2)
  - COITAL BLEEDING [None]
  - DRUG INEFFECTIVE [None]
